FAERS Safety Report 7672003-5 (Version None)
Quarter: 2011Q3

REPORT INFORMATION
  Report Type: 
  Country: None (occurrence: None)
  Receive Date: 20110809
  Receipt Date: 20110729
  Transmission Date: 20111222
  Serious: Yes (Other)
  Sender: FDA-Public Use
  Company Number: CA-JNJFOC-20110801560

PATIENT
  Sex: Male
  Weight: 82 kg

DRUGS (2)
  1. REMICADE [Suspect]
     Indication: CROHN'S DISEASE
     Route: 042
     Dates: start: 20110729
  2. REMICADE [Suspect]
     Route: 042
     Dates: start: 20100910

REACTIONS (5)
  - INFUSION RELATED REACTION [None]
  - FLUSHING [None]
  - BLOOD PRESSURE INCREASED [None]
  - SPEECH DISORDER [None]
  - HEADACHE [None]
